FAERS Safety Report 16912246 (Version 2)
Quarter: 2019Q4

REPORT INFORMATION
  Report Type: Spontaneous
  Country: US (occurrence: US)
  Receive Date: 20191014
  Receipt Date: 20191022
  Transmission Date: 20200122
  Serious: Yes (Other)
  Sender: FDA-Public Use
  Company Number: US-009507513-1910USA006608

PATIENT
  Age: 30 Year
  Sex: Female
  Weight: 126.62 kg

DRUGS (1)
  1. NEXPLANON [Suspect]
     Active Substance: ETONOGESTREL
     Indication: CONTRACEPTION
     Dosage: 1 IMPLANT, LEFT ARM, EVERY 3 YEARS
     Route: 059
     Dates: start: 20190806, end: 20190930

REACTIONS (3)
  - Product quality issue [Unknown]
  - Medical device site reaction [Recovered/Resolved]
  - Device dislocation [Recovered/Resolved]

NARRATIVE: CASE EVENT DATE: 20190930
